FAERS Safety Report 18269306 (Version 1)
Quarter: 2020Q3

REPORT INFORMATION
  Report Type: Spontaneous
  Country: RS (occurrence: RS)
  Receive Date: 20200915
  Receipt Date: 20200915
  Transmission Date: 20201103
  Serious: Yes (Life-Threatening, Hospitalization, Other)
  Sender: FDA-Public Use
  Company Number: RS-JAZZ-2020-RS-003303

PATIENT
  Age: 16 Year
  Sex: Male
  Weight: 80 kg

DRUGS (4)
  1. PRONISON [Concomitant]
     Active Substance: PREDNISONE
     Indication: ACUTE LYMPHOCYTIC LEUKAEMIA
     Dosage: 10 MILLIGRAM, BID
     Route: 048
     Dates: start: 20190920, end: 20191023
  2. URSOFALK [Concomitant]
     Active Substance: URSODIOL
     Indication: ACUTE LYMPHOCYTIC LEUKAEMIA
     Dosage: 250 MILLIGRAM, BID
     Route: 048
     Dates: start: 20191022, end: 20191023
  3. KIDROLASE [Suspect]
     Active Substance: ASPARAGINASE
     Indication: ACUTE LYMPHOCYTIC LEUKAEMIA
     Dosage: UNK
     Route: 030
     Dates: start: 20191022, end: 20191023
  4. NOLPAZA [Concomitant]
     Active Substance: PANTOPRAZOLE SODIUM
     Indication: ACUTE LYMPHOCYTIC LEUKAEMIA
     Dosage: 40 MILLIGRAM, BID
     Route: 048
     Dates: start: 20190920, end: 20191023

REACTIONS (1)
  - Cerebral haemorrhage [Recovering/Resolving]

NARRATIVE: CASE EVENT DATE: 20191028
